FAERS Safety Report 23693685 (Version 1)
Quarter: 2024Q1

REPORT INFORMATION
  Report Type: Spontaneous
  Country: US (occurrence: None)
  Receive Date: 20240331
  Receipt Date: 20240331
  Transmission Date: 20240410
  Serious: Yes (Other)
  Sender: FDA-Public Use
  Company Number: None

PATIENT
  Age: 15 Year
  Sex: Female
  Weight: 60.75 kg

DRUGS (5)
  1. QELBREE [Suspect]
     Active Substance: VILOXAZINE HYDROCHLORIDE
     Indication: Specialist consultation
     Dosage: 1 TABLET DAILY ?
     Dates: start: 20240322, end: 20240331
  2. GUANFACINE [Concomitant]
     Active Substance: GUANFACINE
  3. ALLEGRA [Concomitant]
     Active Substance: FEXOFENADINE HYDROCHLORIDE
  4. MELATONIN [Concomitant]
     Active Substance: MELATONIN
  5. VITAMINS [Concomitant]
     Active Substance: VITAMINS

REACTIONS (9)
  - Fatigue [None]
  - Hypersomnia [None]
  - Therapy cessation [None]
  - Dizziness [None]
  - Disorientation [None]
  - Speech disorder [None]
  - Fatigue [None]
  - Loss of consciousness [None]
  - Nausea [None]

NARRATIVE: CASE EVENT DATE: 20240329
